FAERS Safety Report 9363844 (Version 3)
Quarter: 2013Q3

REPORT INFORMATION
  Report Type: Spontaneous
  Country: US (occurrence: US)
  Receive Date: 20130624
  Receipt Date: 20130723
  Transmission Date: 20140515
  Serious: Yes (Death)
  Sender: FDA-Public Use
  Company Number: US-PFIZER INC-2013186245

PATIENT
  Age: 60 Year
  Sex: Male

DRUGS (1)
  1. NEURONTIN [Suspect]
     Dosage: UNK

REACTIONS (4)
  - Chronic obstructive pulmonary disease [Fatal]
  - Hypertension [Fatal]
  - Local swelling [Fatal]
  - Obesity [Fatal]
